FAERS Safety Report 21864224 (Version 2)
Quarter: 2023Q1

REPORT INFORMATION
  Report Type: Spontaneous
  Country: US (occurrence: US)
  Receive Date: 20230116
  Receipt Date: 20230119
  Transmission Date: 20230417
  Serious: No
  Sender: FDA-Public Use
  Company Number: US-AMGEN-USASP2023001186

PATIENT
  Age: 67 Year
  Sex: Male
  Weight: 111.58 kg

DRUGS (9)
  1. OTEZLA [Suspect]
     Active Substance: APREMILAST
     Indication: Pain in extremity
     Dosage: UNK
     Route: 048
     Dates: start: 202203, end: 202204
  2. MELOXICAM [Concomitant]
     Active Substance: MELOXICAM
  3. NEBIVOLOL [Concomitant]
     Active Substance: NEBIVOLOL
  4. SKYRIZI [Concomitant]
     Active Substance: RISANKIZUMAB-RZAA
     Indication: Psoriasis
     Dosage: 150 MILLIGRAM, Q3MO
     Dates: start: 2020
  5. PFIZER-BIONTECH COVID-19 VACCINE [Concomitant]
     Active Substance: TOZINAMERAN
     Dosage: UNK
     Route: 030
     Dates: start: 20210922, end: 20210922
  6. PFIZER-BIONTECH COVID-19 VACCINE [Concomitant]
     Active Substance: TOZINAMERAN
     Dosage: UNK
     Route: 030
     Dates: start: 20220413, end: 20220413
  7. PANTOPRAZOLE [Concomitant]
     Active Substance: PANTOPRAZOLE
     Indication: Gastrooesophageal reflux disease
  8. GEMFIBROZIL [Concomitant]
     Active Substance: GEMFIBROZIL
  9. LOSARTAN [Concomitant]
     Active Substance: LOSARTAN
     Indication: Hypertension

REACTIONS (2)
  - Fatigue [Unknown]
  - Off label use [Unknown]

NARRATIVE: CASE EVENT DATE: 20220101
